FAERS Safety Report 21681096 (Version 3)
Quarter: 2022Q4

REPORT INFORMATION
  Report Type: Spontaneous
  Country: AT (occurrence: AT)
  Receive Date: 20221205
  Receipt Date: 20221228
  Transmission Date: 20230113
  Serious: Yes (Life-Threatening, Hospitalization, Other)
  Sender: FDA-Public Use
  Company Number: AT-BoehringerIngelheim-2022-BI-193940

PATIENT
  Age: 75 Year
  Sex: Female

DRUGS (9)
  1. CLOZAPINE [Suspect]
     Active Substance: CLOZAPINE
     Indication: Product used for unknown indication
     Dosage: 500 MILLIGRAM, QD
     Route: 065
  2. EMPAGLIFLOZIN [Suspect]
     Active Substance: EMPAGLIFLOZIN
     Indication: Product used for unknown indication
     Dosage: 10 MILLIGRAM, QD
     Route: 065
  3. METFORMIN [Concomitant]
     Active Substance: METFORMIN HYDROCHLORIDE
     Indication: Product used for unknown indication
     Dosage: 2 MILLIGRAM, QD
     Route: 065
  4. METFORMIN [Concomitant]
     Active Substance: METFORMIN HYDROCHLORIDE
     Dosage: DOSE WAS INCREASED TO 2,000 MG/DAY
     Route: 065
  5. SITAGLIPTIN [Concomitant]
     Active Substance: SITAGLIPTIN
     Indication: Product used for unknown indication
     Dosage: 100 MILLIGRAM, QD
     Route: 065
  6. LACTOBACILLUS CASEI [Concomitant]
     Active Substance: LACTOBACILLUS CASEI
     Indication: Product used for unknown indication
     Dosage: UNK
     Route: 065
  7. ATORVASTATIN [Concomitant]
     Active Substance: ATORVASTATIN
     Indication: Product used for unknown indication
     Dosage: 10 MILLIGRAM, QD
     Route: 065
  8. ACARBOSE [Concomitant]
     Active Substance: ACARBOSE
     Indication: Product used for unknown indication
     Dosage: 150 MILLIGRAM, QD
     Route: 065
  9. GLICLAZIDE [Concomitant]
     Active Substance: GLICLAZIDE
     Indication: Product used for unknown indication
     Dosage: 30 MILLIGRAM, QD
     Route: 065

REACTIONS (20)
  - Ketoacidosis [Recovering/Resolving]
  - Hyperglycaemia [Recovering/Resolving]
  - Blood lactic acid increased [Recovered/Resolved]
  - Hypocapnia [Unknown]
  - Chest pain [Unknown]
  - Mucosal dryness [Unknown]
  - Respiratory rate increased [Unknown]
  - Acidosis [Unknown]
  - QRS axis abnormal [Unknown]
  - Abdominal pain [Unknown]
  - Protein urine present [Unknown]
  - Pain [Unknown]
  - Glucose urine present [Unknown]
  - Urine ketone body present [Unknown]
  - Skin turgor decreased [Unknown]
  - Anion gap increased [Unknown]
  - Electrocardiogram QT prolonged [Unknown]
  - Diarrhoea [Unknown]
  - Renal failure [Unknown]
  - Diabetic ketoacidosis [Unknown]

NARRATIVE: CASE EVENT DATE: 20190501
